FAERS Safety Report 19992895 (Version 5)
Quarter: 2021Q4

REPORT INFORMATION
  Report Type: Report from Study
  Country: ES (occurrence: ES)
  Receive Date: 20211025
  Receipt Date: 20211206
  Transmission Date: 20220303
  Serious: Yes (Hospitalization, Other)
  Sender: FDA-Public Use
  Company Number: ES-ABBVIE-21K-144-4093153-00

PATIENT
  Sex: Female

DRUGS (2)
  1. CARBIDOPA\LEVODOPA [Suspect]
     Active Substance: CARBIDOPA\LEVODOPA
     Indication: Parkinson^s disease
     Route: 050
     Dates: start: 20190222, end: 202103
  2. CARBIDOPA\LEVODOPA [Suspect]
     Active Substance: CARBIDOPA\LEVODOPA
     Route: 050
     Dates: start: 202103

REACTIONS (19)
  - Apnoea [Not Recovered/Not Resolved]
  - Pyrexia [Recovered/Resolved]
  - Discomfort [Unknown]
  - Stoma site discomfort [Unknown]
  - Hallucination [Recovering/Resolving]
  - Stoma site discharge [Recovering/Resolving]
  - Stoma site haemorrhage [Not Recovered/Not Resolved]
  - Stoma site pain [Recovered/Resolved]
  - Stoma site ulcer [Recovered/Resolved]
  - Stoma site haemorrhage [Not Recovered/Not Resolved]
  - Stoma site discharge [Unknown]
  - Vomiting [Not Recovered/Not Resolved]
  - Stoma site discharge [Unknown]
  - Abdominal pain upper [Not Recovered/Not Resolved]
  - Stoma site pain [Not Recovered/Not Resolved]
  - Stoma site erythema [Not Recovered/Not Resolved]
  - Medical device pain [Not Recovered/Not Resolved]
  - Stoma site reaction [Not Recovered/Not Resolved]
  - Stoma site hypergranulation [Not Recovered/Not Resolved]

NARRATIVE: CASE EVENT DATE: 20210101
